FAERS Safety Report 6345978-4 (Version None)
Quarter: 2009Q3

REPORT INFORMATION
  Report Type: 
  Country: None (occurrence: None)
  Receive Date: 20090909
  Receipt Date: 20090901
  Transmission Date: 20100115
  Serious: Yes (Other)
  Sender: FDA-Public Use
  Company Number: DE-SANOFI-SYNTHELABO-A01200907687

PATIENT
  Sex: Male
  Weight: 80 kg

DRUGS (2)
  1. ISCOVER [Suspect]
     Indication: STENT PLACEMENT
     Route: 048
     Dates: start: 20090316
  2. ASPIRIN [Suspect]
     Indication: STENT PLACEMENT
     Route: 048
     Dates: start: 20090316

REACTIONS (2)
  - TRAUMATIC HAEMATOMA [None]
  - VASCULAR OCCLUSION [None]
